FAERS Safety Report 15271126 (Version 1)
Quarter: 2018Q3

REPORT INFORMATION
  Report Type: Spontaneous
  Country: US (occurrence: US)
  Receive Date: 20180726
  Receipt Date: 20180726
  Transmission Date: 20181010
  Serious: Yes (Death, Hospitalization)
  Sender: FDA-Public Use
  Company Number: None

PATIENT
  Age: 74 Year
  Sex: Male
  Weight: 66.7 kg

DRUGS (1)
  1. PAZOPANIB (GW786034) [Suspect]
     Active Substance: PAZOPANIB
     Dates: end: 20180621

REACTIONS (8)
  - Blood creatinine increased [None]
  - Diarrhoea [None]
  - Lymphocyte count decreased [None]
  - Decreased appetite [None]
  - Vomiting [None]
  - Intestinal obstruction [None]
  - Weight decreased [None]
  - Renal impairment [None]

NARRATIVE: CASE EVENT DATE: 20180625
